FAERS Safety Report 8463472-1 (Version None)
Quarter: 2012Q2

REPORT INFORMATION
  Report Type: 
  Country: None (occurrence: None)
  Receive Date: 20120625
  Receipt Date: 20120613
  Transmission Date: 20120825
  Serious: Yes (Hospitalization, Other)
  Sender: FDA-Public Use
  Company Number: KR-NAPPMUNDI-MAG-2012-0002185

PATIENT
  Sex: Male
  Weight: 65 kg

DRUGS (6)
  1. CARDURA [Concomitant]
     Dosage: 4 MG, UNK
  2. OXYCODONE HCL/NALOXONE HCL PR 20/10MG [Suspect]
     Indication: PAIN
     Dosage: 1 TABLET, UNK
     Route: 048
     Dates: start: 20120523, end: 20120524
  3. SUNITINIB MALATE [Concomitant]
     Dosage: 37.5 MG, UNK
  4. TYRENOL [Concomitant]
     Indication: ANALGESIC THERAPY
     Dosage: UNK, PRN
  5. DURAGESIC-100 [Concomitant]
     Dosage: 200 MCG, UNK
     Route: 062
     Dates: start: 20120523
  6. OXYCODONE HCL [Suspect]
     Indication: ANALGESIC THERAPY
     Dosage: 80 MG, BID
     Route: 048
     Dates: start: 20120523

REACTIONS (3)
  - ABDOMINAL PAIN [None]
  - CONFUSIONAL STATE [None]
  - HYPERTENSION [None]
